FAERS Safety Report 6787393-5 (Version None)
Quarter: 2010Q2

REPORT INFORMATION
  Report Type: 
  Country: None (occurrence: None)
  Receive Date: 20100623
  Receipt Date: 20070308
  Transmission Date: 20101027
  Serious: No
  Sender: FDA-Public Use
  Company Number: US-PFIZER INC-2007018827

PATIENT
  Sex: Male
  Weight: 81.6 kg

DRUGS (3)
  1. SUTENT [Suspect]
     Indication: RENAL CELL CARCINOMA
     Dosage: CYCLIC: ONCE DAILY, EVERY DAY
     Dates: start: 20070101
  2. SUTENT [Suspect]
     Dosage: CYCLIC: ONCE DAILY, EVERY DAY
  3. TAMSULOSIN HYDROCHLORIDE [Concomitant]

REACTIONS (2)
  - BLISTER [None]
  - GENITAL RASH [None]
